FAERS Safety Report 8135603-4 (Version None)
Quarter: 2012Q1

REPORT INFORMATION
  Report Type: 
  Country: None (occurrence: None)
  Receive Date: 20120214
  Receipt Date: 20120206
  Transmission Date: 20120608
  Serious: Yes (Other)
  Sender: FDA-Public Use
  Company Number: PHHY2012US011812

PATIENT

DRUGS (1)
  1. VALSARTAN [Suspect]
     Indication: HYPERTENSION

REACTIONS (2)
  - RECTAL HAEMORRHAGE [None]
  - HAEMATOCHEZIA [None]
